FAERS Safety Report 23699556 (Version 3)
Quarter: 2024Q2

REPORT INFORMATION
  Report Type: Report from Study
  Country: CA (occurrence: CA)
  Receive Date: 20240402
  Receipt Date: 20240522
  Transmission Date: 20240716
  Serious: Yes (Other)
  Sender: FDA-Public Use
  Company Number: CA-JNJFOC-20240279424

PATIENT
  Age: 64 Year
  Sex: Male

DRUGS (5)
  1. SIMPONI [Suspect]
     Active Substance: GOLIMUMAB
     Indication: Rheumatoid arthritis
     Route: 058
     Dates: start: 20230816
  2. SIMPONI [Suspect]
     Active Substance: GOLIMUMAB
     Route: 058
     Dates: start: 20230816
  3. SIMPONI [Suspect]
     Active Substance: GOLIMUMAB
     Route: 058
     Dates: start: 20230816
  4. SIMPONI [Suspect]
     Active Substance: GOLIMUMAB
     Route: 058
  5. CEPHALEXIN [Suspect]
     Active Substance: CEPHALEXIN

REACTIONS (4)
  - Foot fracture [Recovering/Resolving]
  - Postoperative wound infection [Not Recovered/Not Resolved]
  - Fall [Recovering/Resolving]
  - Drug hypersensitivity [Unknown]
